FAERS Safety Report 5312851-X (Version None)
Quarter: 2007Q2

REPORT INFORMATION
  Report Type: 
  Country: None (occurrence: None)
  Receive Date: 20070430
  Receipt Date: 20070418
  Transmission Date: 20071010
  Serious: Yes (Death, Hospitalization, Other)
  Sender: FDA-Public Use
  Company Number: US-PFIZER INC-2007031114

PATIENT
  Sex: Male

DRUGS (2)
  1. BEXTRA [Suspect]
     Dates: start: 20020901, end: 20041101
  2. VIOXX [Suspect]
     Route: 048
     Dates: start: 20030501, end: 20031001

REACTIONS (3)
  - DEATH [None]
  - MYOCARDIAL INFARCTION [None]
  - THROMBOSIS [None]
